FAERS Safety Report 6258344-7 (Version None)
Quarter: 2009Q3

REPORT INFORMATION
  Report Type: 
  Country: None (occurrence: None)
  Receive Date: 20090702
  Receipt Date: 20090702
  Transmission Date: 20100115
  Serious: Yes (Life-Threatening)
  Sender: FDA-Public Use
  Company Number: None

PATIENT
  Age: 52 Year
  Sex: Female
  Weight: 77.1115 kg

DRUGS (4)
  1. LANTUS [Suspect]
     Indication: TYPE 1 DIABETES MELLITUS
     Dosage: 12 - 20 UNITS  1 X DAILY AT BEDTI SQ
     Route: 058
  2. NOVOLOG [Concomitant]
  3. HUMALOG REGULAR INSULIN [Concomitant]
  4. LEVOTHROID [Concomitant]

REACTIONS (1)
  - BREAST CANCER [None]
